FAERS Safety Report 18363538 (Version 2)
Quarter: 2021Q4

REPORT INFORMATION
  Report Type: Spontaneous
  Country: US (occurrence: US)
  Receive Date: 20201008
  Receipt Date: 20211217
  Transmission Date: 20220303
  Serious: Yes (Other)
  Sender: FDA-Public Use
  Company Number: US-INCYTE CORPORATION-2020IN009791

PATIENT

DRUGS (6)
  1. JAKAFI [Suspect]
     Active Substance: RUXOLITINIB
     Indication: Polycythaemia vera
     Dosage: 15 MILLIGRAM (5MG TABLETS (2 TABS QAM, 1 TAB QPM 12 HOURS APART), QD
     Route: 048
     Dates: start: 20180605
  2. JAKAFI [Suspect]
     Active Substance: RUXOLITINIB
     Dosage: 10 MG, EVERY MORNING AND EVERY EVENING
     Route: 048
  3. JAKAFI [Suspect]
     Active Substance: RUXOLITINIB
     Dosage: 5 MILLIGRAM (2 TABLETS), EVERY MORNING AND 5 MG (1 TABLET) EVERY EVENING (12 HOURS APART)
     Route: 048
     Dates: start: 20180605
  4. FUROSEMIDE [Concomitant]
     Active Substance: FUROSEMIDE
     Indication: Product used for unknown indication
     Dosage: 40 MILLIGRAM
     Route: 065
  5. NITROFURANTOIN [Concomitant]
     Active Substance: NITROFURANTOIN
     Indication: Product used for unknown indication
     Dosage: 100 MILLIGRAM
     Route: 065
  6. METOLAZONE [Concomitant]
     Active Substance: METOLAZONE
     Indication: Product used for unknown indication
     Dosage: 2.5 MILLIGRAM
     Route: 065

REACTIONS (6)
  - Thrombosis [Unknown]
  - Speech disorder [Unknown]
  - Fall [Unknown]
  - Pain [Unknown]
  - Skin discolouration [Unknown]
  - Balance disorder [Unknown]

NARRATIVE: CASE EVENT DATE: 20211208
